FAERS Safety Report 8243796-3 (Version None)
Quarter: 2012Q1

REPORT INFORMATION
  Report Type: 
  Country: None (occurrence: None)
  Receive Date: 20120329
  Receipt Date: 20111213
  Transmission Date: 20120608
  Serious: No
  Sender: FDA-Public Use
  Company Number: US-MYLANLABS-2011S1023992

PATIENT
  Age: 40 Year
  Sex: Female

DRUGS (1)
  1. EMSAM [Suspect]
     Indication: DEPRESSION
     Dosage: QD
     Route: 062
     Dates: start: 20111107, end: 20111120

REACTIONS (5)
  - WEIGHT DECREASED [None]
  - DEPRESSION [None]
  - INSOMNIA [None]
  - DECREASED APPETITE [None]
  - ANXIETY [None]
